FAERS Safety Report 9549440 (Version 1)
Quarter: 2013Q3

REPORT INFORMATION
  Report Type: Spontaneous
  Country: SE (occurrence: None)
  Receive Date: 20130919
  Receipt Date: 20130919
  Transmission Date: 20140515
  Serious: Yes (Other)
  Sender: FDA-Public Use
  Company Number: SYM-2013-10749

PATIENT
  Age: 50 Year
  Sex: Male

DRUGS (3)
  1. VOXRA [Suspect]
     Indication: DEPRESSION
     Route: 048
     Dates: start: 20130704, end: 20130713
  2. LERGIGAN )PROMETHAZINE HYDROCHLORIDE) (PROMETHAZINE HYDROCHLORIDE) [Concomitant]
  3. STILNOCT (ZOLPIDEM TARTRATE) (ZOLPIDEM TARTRATE) [Concomitant]

REACTIONS (1)
  - Arthralgia [None]
